FAERS Safety Report 11738149 (Version 2)
Quarter: 2015Q4

REPORT INFORMATION
  Report Type: Report from Study
  Country: DE (occurrence: DE)
  Receive Date: 20151113
  Receipt Date: 20151120
  Transmission Date: 20160304
  Serious: Yes (Hospitalization, Other)
  Sender: FDA-Public Use
  Company Number: DE-ABBVIE-15P-062-1497283-00

PATIENT
  Age: 36 Year
  Sex: Female
  Weight: 60 kg

DRUGS (1)
  1. HUMIRA [Suspect]
     Active Substance: ADALIMUMAB
     Indication: RHEUMATOID ARTHRITIS
     Route: 058
     Dates: start: 20150529, end: 20150824

REACTIONS (2)
  - Foetal death [Unknown]
  - Ectopic pregnancy [Recovered/Resolved]

NARRATIVE: CASE EVENT DATE: 20151029
